FAERS Safety Report 5614371-1 (Version None)
Quarter: 2008Q1

REPORT INFORMATION
  Report Type: 
  Country: None (occurrence: None)
  Receive Date: 20080205
  Receipt Date: 20080129
  Transmission Date: 20080703
  Serious: No
  Sender: FDA-Public Use
  Company Number: GB-PFIZER INC-2007084027

PATIENT
  Sex: Male
  Weight: 3.37 kg

DRUGS (5)
  1. VIRACEPT [Suspect]
     Indication: HIV INFECTION
     Dosage: DAILY DOSE:2500MG
     Dates: start: 20040130, end: 20040720
  2. LAMIVUDINE + ZIDOVUDINE [Suspect]
     Indication: HIV INFECTION
     Dosage: DAILY DOSE:600MG
     Dates: start: 20040130, end: 20040601
  3. KALETRA [Suspect]
     Indication: HIV INFECTION
     Dosage: DAILY DOSE:6600MG
  4. VIREAD [Suspect]
     Indication: HIV INFECTION
     Dosage: DAILY DOSE:300MG
     Dates: start: 20040601, end: 20040720
  5. ZIDOVUDINE [Suspect]
     Indication: HIV INFECTION

REACTIONS (1)
  - NO ADVERSE EVENT [None]
